FAERS Safety Report 17691899 (Version 3)
Quarter: 2020Q2

REPORT INFORMATION
  Report Type: Spontaneous
  Country: US (occurrence: US)
  Receive Date: 20200422
  Receipt Date: 20200619
  Transmission Date: 20200714
  Serious: Yes (Other)
  Sender: FDA-Public Use
  Company Number: US-ELI_LILLY_AND_COMPANY-US202004005954

PATIENT
  Sex: Female

DRUGS (4)
  1. ILETIN I [Suspect]
     Active Substance: INSULIN PORK\INSULIN PURIFIED PORK
     Indication: DIABETES MELLITUS
     Dosage: UNK, UNKNOWN
     Route: 065
  2. HUMALOG [Suspect]
     Active Substance: INSULIN LISPRO
     Dosage: 80 U, DAILY
     Route: 058
  3. ILETIN I [Suspect]
     Active Substance: INSULIN PORK\INSULIN PURIFIED PORK
     Indication: DIABETES MELLITUS
     Dosage: UNK, UNKNOWN
     Route: 065
  4. HUMALOG [Suspect]
     Active Substance: INSULIN LISPRO
     Indication: DIABETES MELLITUS
     Dosage: UNK UNK, PRN
     Route: 058

REACTIONS (9)
  - Glaucoma [Unknown]
  - Malaise [Unknown]
  - Retinopathy [Unknown]
  - Blood glucose increased [Unknown]
  - Neuropathy peripheral [Unknown]
  - Eye haemorrhage [Unknown]
  - Asthma [Unknown]
  - Product dose omission [Unknown]
  - Skin cancer [Unknown]

NARRATIVE: CASE EVENT DATE: 1980
